FAERS Safety Report 17825589 (Version 2)
Quarter: 2020Q2

REPORT INFORMATION
  Report Type: Spontaneous
  Country: PT (occurrence: PT)
  Receive Date: 20200526
  Receipt Date: 20200529
  Transmission Date: 20200714
  Serious: Yes (Other)
  Sender: FDA-Public Use
  Company Number: PT-ROCHE-2605316

PATIENT
  Age: 15 Year
  Sex: Male

DRUGS (12)
  1. CLONAZEPAM. [Suspect]
     Active Substance: CLONAZEPAM
     Indication: TOURETTE^S DISORDER
     Route: 065
  2. PIMOZIDE. [Suspect]
     Active Substance: PIMOZIDE
     Indication: TOURETTE^S DISORDER
     Route: 065
  3. FLUVOXAMINE [Suspect]
     Active Substance: FLUVOXAMINE
     Indication: TOURETTE^S DISORDER
     Route: 065
  4. SERTRALINE [Suspect]
     Active Substance: SERTRALINE HYDROCHLORIDE
     Indication: TOURETTE^S DISORDER
     Route: 065
  5. ETHYL LOFLAZEPATE [Suspect]
     Active Substance: ETHYL LOFLAZEPATE
     Indication: TOURETTE^S DISORDER
     Route: 065
  6. MIDAZOLAM. [Suspect]
     Active Substance: MIDAZOLAM
     Indication: TOURETTE^S DISORDER
     Route: 040
  7. CLONIDINE. [Suspect]
     Active Substance: CLONIDINE
     Indication: TOURETTE^S DISORDER
     Route: 065
  8. ARIPIPRAZOLE. [Suspect]
     Active Substance: ARIPIPRAZOLE
     Indication: TOURETTE^S DISORDER
     Route: 065
  9. LORAZEPAM. [Suspect]
     Active Substance: LORAZEPAM
     Indication: TOURETTE^S DISORDER
     Route: 065
  10. DIAZEPAM. [Suspect]
     Active Substance: DIAZEPAM
     Indication: TOURETTE^S DISORDER
     Route: 065
  11. TIAPRIDE [Suspect]
     Active Substance: TIAPRIDE
     Indication: TOURETTE^S DISORDER
     Route: 065
  12. TETRABENAZINE. [Suspect]
     Active Substance: TETRABENAZINE
     Indication: TOURETTE^S DISORDER
     Route: 065

REACTIONS (3)
  - Parkinsonism [Unknown]
  - Catatonia [Unknown]
  - Neuroleptic malignant syndrome [Unknown]
